FAERS Safety Report 12517097 (Version 1)
Quarter: 2016Q2

REPORT INFORMATION
  Report Type: Spontaneous
  Country: US (occurrence: US)
  Receive Date: 20160630
  Receipt Date: 20160630
  Transmission Date: 20160815
  Serious: No
  Sender: FDA-Public Use
  Company Number: US-PFIZER INC-2016285139

PATIENT
  Age: 83 Year
  Sex: Female

DRUGS (10)
  1. SULFAMETHOXAZOLE/TRIMETHOPRIM [Suspect]
     Active Substance: SULFAMETHOXAZOLE\TRIMETHOPRIM
     Dosage: UNK
  2. SODIUM SULAMYD [Suspect]
     Active Substance: SULFACETAMIDE SODIUM
     Dosage: UNK
  3. CEFACLOR. [Suspect]
     Active Substance: CEFACLOR
  4. LIPITOR [Suspect]
     Active Substance: ATORVASTATIN CALCIUM
     Dosage: UNK
  5. AMOXICILLIN. [Suspect]
     Active Substance: AMOXICILLIN
     Dosage: UNK
  6. BEXTRA [Suspect]
     Active Substance: VALDECOXIB
     Dosage: UNK
  7. ERY-TAB [Suspect]
     Active Substance: ERYTHROMYCIN
     Dosage: UNK
  8. ETODOLAC. [Suspect]
     Active Substance: ETODOLAC
     Dosage: UNK
  9. PRILOSEC [Suspect]
     Active Substance: OMEPRAZOLE MAGNESIUM
     Dosage: UNK
  10. VIOXX [Suspect]
     Active Substance: ROFECOXIB

REACTIONS (1)
  - Drug hypersensitivity [Unknown]
